FAERS Safety Report 6687924-X (Version None)
Quarter: 2010Q2

REPORT INFORMATION
  Report Type: 
  Country: None (occurrence: None)
  Receive Date: 20100420
  Receipt Date: 20100413
  Transmission Date: 20101027
  Serious: Yes (Other)
  Sender: FDA-Public Use
  Company Number: FR-SANOFI-AVENTIS-2010SA021438

PATIENT
  Age: 60 Year
  Sex: Female

DRUGS (7)
  1. ARAVA [Suspect]
     Indication: RHEUMATOID ARTHRITIS
     Route: 042
  2. CORTANCYL [Suspect]
     Indication: RHEUMATOID ARTHRITIS
     Route: 048
  3. ACTONEL [Suspect]
     Indication: RHEUMATOID ARTHRITIS
     Dosage: DOSE:1 UNIT(S)
     Route: 048
     Dates: start: 20020401, end: 20081201
  4. TAHOR [Suspect]
     Route: 048
  5. APROVEL [Suspect]
     Dosage: DOSE:1 UNIT(S)
     Route: 048
  6. CACIT /FRA/ [Suspect]
     Indication: OSTEOPOROSIS
     Dosage: DOSE:1 UNIT(S)
     Route: 048
     Dates: start: 20010101
  7. NEXIUM /UNK/ [Suspect]
     Route: 048

REACTIONS (1)
  - OSTEONECROSIS [None]
